FAERS Safety Report 8965563 (Version 1)
Quarter: 2012Q4

REPORT INFORMATION
  Report Type: Spontaneous
  Country: US (occurrence: None)
  Receive Date: 20121212
  Receipt Date: 20121212
  Transmission Date: 20130627
  Serious: Yes (Hospitalization)
  Sender: FDA-Public Use
  Company Number: None

PATIENT
  Age: 36 Year
  Sex: Male
  Weight: 79.4 kg

DRUGS (5)
  1. FOLFIRINOX(FLUOROURACIL\IRINOTECAN\LEUCOVORIN\OXALIPLATIN [Suspect]
     Indication: COLON CANCER METASTATIC
     Dosage: 5fu 100mg/m2 IVpush over 2-5 min, 5FU
2400mg/m2  over 46 hrs, Irinotecan  150mg/m2,
     Dates: start: 20120819
  2. FOLFIRINOX(FLUOROURACIL\IRINOTECAN\LEUCOVORIN\OXALIPLATIN [Suspect]
     Indication: COLON CANCER METASTATIC
     Dates: start: 20120702
  3. FOLFIRINOX(FLUOROURACIL\IRINOTECAN\LEUCOVORIN\OXALIPLATIN [Suspect]
     Indication: COLON CANCER METASTATIC
     Dates: start: 20120731
  4. FOLFIRINOX(FLUOROURACIL\IRINOTECAN\LEUCOVORIN\OXALIPLATIN [Suspect]
     Indication: COLON CANCER METASTATIC
     Dates: start: 20120814
  5. REGORAFENIB [Suspect]
     Dosage: 160mg po qd Days 4-10 and 18-24
8/22-8/28,  7/5-7/11
     Route: 048

REACTIONS (6)
  - Febrile neutropenia [None]
  - Ileus [None]
  - Diarrhoea [None]
  - Pancytopenia [None]
  - Electrolyte imbalance [None]
  - Urine analysis abnormal [None]
